FAERS Safety Report 12348840 (Version 1)
Quarter: 2016Q2

REPORT INFORMATION
  Report Type: Spontaneous
  Country: US (occurrence: US)
  Receive Date: 20160509
  Receipt Date: 20160509
  Transmission Date: 20160815
  Serious: No
  Sender: FDA-Public Use
  Company Number: US-PFIZER INC-2016244818

PATIENT
  Age: 57 Year
  Sex: Female
  Weight: 97.52 kg

DRUGS (6)
  1. SEROQUEL XR [Interacting]
     Active Substance: QUETIAPINE FUMARATE
     Indication: MOOD SWINGS
     Dosage: 100 MG, UNK
  2. EFFEXOR XR [Suspect]
     Active Substance: VENLAFAXINE HYDROCHLORIDE
     Indication: GENERALISED ANXIETY DISORDER
     Dosage: 75 MG, 2X/DAY
  3. EFFEXOR XR [Interacting]
     Active Substance: VENLAFAXINE HYDROCHLORIDE
     Indication: DEPRESSION
  4. SEROQUEL XR [Interacting]
     Active Substance: QUETIAPINE FUMARATE
     Dosage: 50 MG, 1X/DAY, EVERY NIGHT
  5. VALIUM [Concomitant]
     Active Substance: DIAZEPAM
     Indication: PANIC ATTACK
     Dosage: UNK, AS NEEDED
  6. XANAX [Concomitant]
     Active Substance: ALPRAZOLAM
     Indication: PANIC ATTACK
     Dosage: UNK, AS NEEDED

REACTIONS (10)
  - Heart rate increased [Recovered/Resolved]
  - Drug intolerance [Unknown]
  - Drug interaction [Unknown]
  - Condition aggravated [Unknown]
  - Withdrawal syndrome [Unknown]
  - Cardiac disorder [Unknown]
  - Depression [Unknown]
  - Somnolence [Unknown]
  - Crying [Unknown]
  - Panic attack [Not Recovered/Not Resolved]
